FAERS Safety Report 6501511-5 (Version None)
Quarter: 2009Q4

REPORT INFORMATION
  Report Type: 
  Country: None (occurrence: None)
  Receive Date: 20091216
  Receipt Date: 20091208
  Transmission Date: 20100525
  Serious: Yes (Other)
  Sender: FDA-Public Use
  Company Number: A0835068A

PATIENT
  Age: 75 Year
  Sex: Female

DRUGS (3)
  1. AVANDIA [Suspect]
     Dosage: 2MG PER DAY
     Route: 065
     Dates: start: 20050101, end: 20070401
  2. AVANDAMET [Suspect]
     Route: 065
     Dates: start: 20050323
  3. AVANDARYL [Suspect]
     Route: 065
     Dates: start: 20060209

REACTIONS (2)
  - HEART VALVE INCOMPETENCE [None]
  - MYOCARDIAL INFARCTION [None]
